FAERS Safety Report 9107974 (Version 11)
Quarter: 2013Q3

REPORT INFORMATION
  Report Type: Report from Study
  Country: JP (occurrence: JP)
  Receive Date: 20130221
  Receipt Date: 20130814
  Transmission Date: 20140515
  Serious: Yes (Hospitalization)
  Sender: FDA-Public Use
  Company Number: JP-UCBSA-077658

PATIENT
  Age: 57 Year
  Sex: Male
  Weight: 58.8 kg

DRUGS (12)
  1. CERTOLIZUMAB PEGOL [Suspect]
     Indication: RHEUMATOID ARTHRITIS
     Dosage: 200 MG/PLACEBO Q 2 WEEKS
     Route: 058
     Dates: start: 20120319, end: 20130121
  2. METHOTREXATE [Suspect]
     Indication: RHEUMATOID ARTHRITIS
     Route: 048
     Dates: start: 20120315, end: 20130130
  3. LOXOPROFEN SODIUM HYDRATE [Concomitant]
     Indication: RHEUMATOID ARTHRITIS
     Route: 048
     Dates: start: 20120131, end: 20130303
  4. CELECOXIB [Concomitant]
     Indication: RHEUMATOID ARTHRITIS
     Dosage: 100-200 MG
     Route: 048
     Dates: start: 20120416, end: 20130317
  5. FOLIC ACID [Concomitant]
     Indication: PROPHYLAXIS
     Route: 048
     Dates: start: 20120322
  6. ISONIAZID [Concomitant]
     Indication: ANTIBIOTIC PROPHYLAXIS
     Route: 048
     Dates: start: 20120227, end: 20130222
  7. PYRIDOXAL PHOSPHATE HYDRATE [Concomitant]
     Indication: PROPHYLAXIS
     Route: 048
     Dates: start: 20120227, end: 20130222
  8. REBAMIPIDE [Concomitant]
     Indication: GASTRITIS PROPHYLAXIS
     Route: 048
     Dates: start: 20120626, end: 20130217
  9. REBAMIPIDE [Concomitant]
     Indication: GASTRITIS PROPHYLAXIS
     Route: 048
     Dates: start: 20130218
  10. OSELTAMIVIR PHOSPHATE [Concomitant]
     Indication: INFLUENZA
     Route: 048
     Dates: start: 20130130
  11. LANSOPRAZOLE [Concomitant]
     Indication: GASTRITIS PROPHYLAXIS
     Route: 048
     Dates: start: 20130201, end: 20130306
  12. BROTIZOLAM [Concomitant]
     Indication: PROPHYLAXIS
     Route: 048
     Dates: start: 20130202, end: 20130318

REACTIONS (2)
  - Pneumocystis jirovecii pneumonia [Recovered/Resolved]
  - Meningitis fungal [Recovered/Resolved]
